FAERS Safety Report 7743074-2 (Version None)
Quarter: 2011Q3

REPORT INFORMATION
  Report Type: 
  Country: None (occurrence: None)
  Receive Date: 20110908
  Receipt Date: 20110908
  Transmission Date: 20111222
  Serious: Yes (Other)
  Sender: FDA-Public Use
  Company Number: None

PATIENT
  Age: 82 Year
  Sex: Female
  Weight: 52.1637 kg

DRUGS (1)
  1. EXELON [Suspect]
     Indication: DEMENTIA
     Dosage: 9.5 MG DAILY UPPER ARM + UPPER BACK 40 PATCHES (APPROX.)

REACTIONS (1)
  - APPLICATION SITE RASH [None]
